FAERS Safety Report 16693000 (Version 1)
Quarter: 2019Q4

REPORT INFORMATION
  Report Type: Spontaneous
  Country: US (occurrence: US)
  Receive Date: 20190809
  Receipt Date: 20190809
  Transmission Date: 20200122
  Serious: No
  Sender: FDA-Public Use
  Company Number: None

PATIENT
  Age: 32 Year
  Sex: Female

DRUGS (8)
  1. PREGNYL 10,000UNITS [Concomitant]
     Dates: start: 20190426, end: 20190809
  2. ZITHROMAX [Concomitant]
     Active Substance: AZITHROMYCIN DIHYDRATE
     Dates: start: 20190426, end: 20190501
  3. MENOPUR 75UNITS [Concomitant]
     Dates: start: 20190426, end: 20190809
  4. ENDOMETRIN 100MG [Concomitant]
     Dates: start: 20190426, end: 20190809
  5. FOLLISTIM AQ 900UNITS [Concomitant]
     Dates: start: 20190426, end: 20190809
  6. GANIRELIX [Suspect]
     Active Substance: GANIRELIX
     Indication: INFERTILITY FEMALE
     Dosage: ?          OTHER FREQUENCY:WHEN DIRECTED BYMD;??
     Route: 058
     Dates: start: 20190429
  7. PROGESTERONE OIL 50MG/ML [Concomitant]
     Dates: start: 20190426, end: 20190809
  8. METHYLPREDNISOLONE 16MG [Concomitant]
     Dates: start: 20190426, end: 20190809

REACTIONS (1)
  - Injection site pruritus [None]

NARRATIVE: CASE EVENT DATE: 20190808
